FAERS Safety Report 21732823 (Version 3)
Quarter: 2022Q4

REPORT INFORMATION
  Report Type: Spontaneous
  Country: CN (occurrence: CN)
  Receive Date: 20221215
  Receipt Date: 20221222
  Transmission Date: 20230113
  Serious: Yes (Death, Life-Threatening, Hospitalization)
  Sender: FDA-Public Use
  Company Number: CN-MLMSERVICE-20221117-3924616-2

PATIENT
  Age: 4 Month
  Sex: Male
  Weight: 9.5 kg

DRUGS (4)
  1. MOMETASONE FUROATE [Suspect]
     Active Substance: MOMETASONE FUROATE
     Indication: Rash
     Dosage: A SMALL AMOUNT OF MOMETASONE OINTMENT WAS USED FOR 2.6 MONTHS
  2. METHYLPREDNISOLONE [Suspect]
     Active Substance: METHYLPREDNISOLONE
     Indication: Necrotising enterocolitis neonatal
     Dosage: 25 MG, QD
     Route: 048
  3. DEXAMETHASONE [Suspect]
     Active Substance: DEXAMETHASONE
     Dosage: 2MG, ONCE
     Route: 042
  4. HYDROCORTISONE [Suspect]
     Active Substance: HYDROCORTISONE
     Indication: Secondary adrenocortical insufficiency
     Dosage: 10 MG, EVERY 8 HOURS FOR 1 DAY
     Route: 042

REACTIONS (2)
  - Congenital endocrine anomaly [Fatal]
  - Cushing^s syndrome [Fatal]
